FAERS Safety Report 6894141-7 (Version None)
Quarter: 2010Q3

REPORT INFORMATION
  Report Type: 
  Country: None (occurrence: None)
  Receive Date: 20100708
  Receipt Date: 20091105
  Transmission Date: 20110219
  Serious: Yes (Other)
  Sender: FDA-Public Use
  Company Number: 2009295367

PATIENT
  Sex: Male
  Weight: 109 kg

DRUGS (4)
  1. CHANTIX [Suspect]
     Indication: SMOKING CESSATION THERAPY
     Dates: start: 20090101
  2. TRICOR [Concomitant]
  3. SIMVASTATIN [Concomitant]
  4. IBUPROFEN [Concomitant]

REACTIONS (2)
  - PRURITUS [None]
  - RASH [None]
